FAERS Safety Report 6159661-1 (Version None)
Quarter: 2009Q2

REPORT INFORMATION
  Report Type: 
  Country: None (occurrence: None)
  Receive Date: 20090420
  Receipt Date: 20090414
  Transmission Date: 20091009
  Serious: No
  Sender: FDA-Public Use
  Company Number: AT-ASTRAZENECA-2009PK01070

PATIENT
  Sex: Female

DRUGS (1)
  1. SEROQUEL [Suspect]
     Route: 048
     Dates: start: 20070101

REACTIONS (2)
  - LEUKOPENIA [None]
  - NEUTROPENIA [None]
